FAERS Safety Report 21391424 (Version 1)
Quarter: 2022Q3

REPORT INFORMATION
  Report Type: Spontaneous
  Country: US (occurrence: None)
  Receive Date: 20220928
  Receipt Date: 20220928
  Transmission Date: 20221027
  Serious: Yes (Other)
  Sender: FDA-Public Use
  Company Number: None

PATIENT
  Sex: Male

DRUGS (3)
  1. GABAPENTIN [Suspect]
     Active Substance: GABAPENTIN
  2. COSMETICS [Suspect]
     Active Substance: COSMETICS
  3. Gabapenlin [Concomitant]

REACTIONS (2)
  - Somnolence [None]
  - Drug ineffective [None]
